FAERS Safety Report 7681287-9 (Version None)
Quarter: 2011Q3

REPORT INFORMATION
  Report Type: 
  Country: None (occurrence: None)
  Receive Date: 20110804
  Receipt Date: 20110801
  Transmission Date: 20111222
  Serious: Yes (Death, Hospitalization, Other)
  Sender: FDA-Public Use
  Company Number: 2011SP008476

PATIENT
  Age: 75 Year
  Sex: Female
  Weight: 50.5 kg

DRUGS (16)
  1. SEROTONE [Concomitant]
  2. ARICEPT [Concomitant]
  3. VALPROATE SODIUM [Concomitant]
  4. TEMODAL [Suspect]
     Indication: ANAPLASTIC ASTROCYTOMA
     Dosage: 150 MG/M2;QD;PO 150 MG/M2;QD;PO 150 MG/M2;QD;PO 150 MG/M2;QD;PO 150 MG/M2;QD;PO 150 MG/M2;QD;PO
     Route: 048
     Dates: start: 20071015, end: 20071019
  5. TEMODAL [Suspect]
     Indication: ANAPLASTIC ASTROCYTOMA
     Dosage: 150 MG/M2;QD;PO 150 MG/M2;QD;PO 150 MG/M2;QD;PO 150 MG/M2;QD;PO 150 MG/M2;QD;PO 150 MG/M2;QD;PO
     Route: 048
     Dates: start: 20071119, end: 20071123
  6. TEMODAL [Suspect]
     Indication: ANAPLASTIC ASTROCYTOMA
     Dosage: 150 MG/M2;QD;PO 150 MG/M2;QD;PO 150 MG/M2;QD;PO 150 MG/M2;QD;PO 150 MG/M2;QD;PO 150 MG/M2;QD;PO
     Route: 048
     Dates: start: 20080229, end: 20080304
  7. TEMODAL [Suspect]
     Indication: ANAPLASTIC ASTROCYTOMA
     Dosage: 150 MG/M2;QD;PO 150 MG/M2;QD;PO 150 MG/M2;QD;PO 150 MG/M2;QD;PO 150 MG/M2;QD;PO 150 MG/M2;QD;PO
     Route: 048
     Dates: start: 20080119, end: 20080123
  8. TEMODAL [Suspect]
     Indication: ANAPLASTIC ASTROCYTOMA
     Dosage: 150 MG/M2;QD;PO 150 MG/M2;QD;PO 150 MG/M2;QD;PO 150 MG/M2;QD;PO 150 MG/M2;QD;PO 150 MG/M2;QD;PO
     Route: 048
     Dates: start: 20071219, end: 20071223
  9. TEMODAL [Suspect]
     Indication: ANAPLASTIC ASTROCYTOMA
     Dosage: 150 MG/M2;QD;PO 150 MG/M2;QD;PO 150 MG/M2;QD;PO 150 MG/M2;QD;PO 150 MG/M2;QD;PO 150 MG/M2;QD;PO
     Route: 048
     Dates: start: 20070827, end: 20070831
  10. TEMODAL [Suspect]
     Indication: ANAPLASTIC ASTROCYTOMA
     Dosage: 150 MG/M2;QD;PO 150 MG/M2;QD;PO 150 MG/M2;QD;PO 150 MG/M2;QD;PO 150 MG/M2;QD;PO
     Route: 048
     Dates: start: 20080902, end: 20080906
  11. TEMODAL [Suspect]
     Indication: ANAPLASTIC ASTROCYTOMA
     Dosage: 150 MG/M2;QD;PO 150 MG/M2;QD;PO 150 MG/M2;QD;PO 150 MG/M2;QD;PO 150 MG/M2;QD;PO
     Route: 048
     Dates: start: 20080609, end: 20080613
  12. TEMODAL [Suspect]
     Indication: ANAPLASTIC ASTROCYTOMA
     Dosage: 150 MG/M2;QD;PO 150 MG/M2;QD;PO 150 MG/M2;QD;PO 150 MG/M2;QD;PO 150 MG/M2;QD;PO
     Route: 048
     Dates: start: 20080707, end: 20080711
  13. TEMODAL [Suspect]
     Indication: ANAPLASTIC ASTROCYTOMA
     Dosage: 150 MG/M2;QD;PO 150 MG/M2;QD;PO 150 MG/M2;QD;PO 150 MG/M2;QD;PO 150 MG/M2;QD;PO
     Route: 048
     Dates: start: 20080403, end: 20080407
  14. TEMODAL [Suspect]
     Indication: ANAPLASTIC ASTROCYTOMA
     Dosage: 150 MG/M2;QD;PO 150 MG/M2;QD;PO 150 MG/M2;QD;PO 150 MG/M2;QD;PO 150 MG/M2;QD;PO
     Route: 048
     Dates: start: 20080509, end: 20080513
  15. TEMODAL [Suspect]
     Indication: ANAPLASTIC ASTROCYTOMA
     Dosage: 150 MG/M2;QD;PO 150 MG/M2;QD;PO 150 MG/M2;QD;PO 150 MG/M2;QD;PO 150 MG/M2;QD;PO
     Route: 048
     Dates: start: 20081010, end: 20081014
  16. ZONISAMIDE [Concomitant]

REACTIONS (5)
  - ANAPLASTIC ASTROCYTOMA [None]
  - PNEUMONIA ASPIRATION [None]
  - PYELONEPHRITIS [None]
  - DISEASE PROGRESSION [None]
  - BLOOD POTASSIUM DECREASED [None]
